FAERS Safety Report 7681790-1 (Version None)
Quarter: 2011Q3

REPORT INFORMATION
  Report Type: 
  Country: None (occurrence: None)
  Receive Date: 20110812
  Receipt Date: 20110803
  Transmission Date: 20111222
  Serious: Yes (Hospitalization)
  Sender: FDA-Public Use
  Company Number: BR-ASTRAZENECA-2011SE46751

PATIENT
  Age: 73 Year
  Sex: Female
  Weight: 73 kg

DRUGS (4)
  1. ATACAND [Suspect]
     Indication: HYPERTENSION
     Route: 048
     Dates: start: 20010101, end: 20110501
  2. ATENOLOL [Suspect]
     Indication: HYPERTENSION
     Route: 048
     Dates: start: 20110501
  3. TRILEPTAL [Concomitant]
     Indication: CONVULSION
     Route: 048
     Dates: start: 19960101
  4. NORTRIPTYLINE HCL [Suspect]
     Indication: ANXIETY
     Route: 048
     Dates: start: 20090101, end: 20110501

REACTIONS (3)
  - ANXIETY [None]
  - ARRHYTHMIA [None]
  - DIZZINESS [None]
